FAERS Safety Report 20201039 (Version 1)
Quarter: 2021Q4

REPORT INFORMATION
  Report Type: Spontaneous
  Country: GB (occurrence: GB)
  Receive Date: 20211217
  Receipt Date: 20211217
  Transmission Date: 20220303
  Serious: Yes (Other)
  Sender: FDA-Public Use
  Company Number: None

PATIENT
  Age: 47 Year
  Sex: Male
  Weight: 83 kg

DRUGS (4)
  1. ELEXACAFTOR\IVACAFTOR\TEZACAFTOR [Suspect]
     Active Substance: ELEXACAFTOR\IVACAFTOR\TEZACAFTOR
     Indication: Cystic fibrosis
     Dosage: KAFTRIO 75MG IVA/50MG TEZA/100MG ELEXA
     Route: 048
     Dates: start: 20210419
  2. ELEXACAFTOR\IVACAFTOR\TEZACAFTOR [Suspect]
     Active Substance: ELEXACAFTOR\IVACAFTOR\TEZACAFTOR
     Indication: CFTR gene mutation
  3. KALYDECO [Suspect]
     Active Substance: IVACAFTOR
     Indication: Cystic fibrosis
     Dosage: 150 MG IVACAFOR, UNK FREQ
     Route: 048
     Dates: start: 20210419
  4. KALYDECO [Suspect]
     Active Substance: IVACAFTOR
     Indication: CFTR gene mutation

REACTIONS (3)
  - Cerebrovascular accident [Recovered/Resolved]
  - Facial paralysis [Unknown]
  - Aphasia [Unknown]

NARRATIVE: CASE EVENT DATE: 20211205
